FAERS Safety Report 6679632-6 (Version None)
Quarter: 2010Q2

REPORT INFORMATION
  Report Type: 
  Country: None (occurrence: None)
  Receive Date: 20100413
  Receipt Date: 20100412
  Transmission Date: 20101027
  Serious: Yes (Hospitalization)
  Sender: FDA-Public Use
  Company Number: A0807534A

PATIENT
  Age: 60 Year
  Sex: Male

DRUGS (2)
  1. AVANDIA [Suspect]
     Dosage: 4MG TWICE PER DAY
     Route: 048
     Dates: start: 20050801, end: 20070401
  2. AVANDARYL [Suspect]
     Route: 048
     Dates: start: 20070101, end: 20070101

REACTIONS (2)
  - INJURY [None]
  - MYOCARDIAL INFARCTION [None]
